FAERS Safety Report 15423889 (Version 5)
Quarter: 2019Q2

REPORT INFORMATION
  Report Type: Report from Study
  Country: JP (occurrence: JP)
  Receive Date: 20180925
  Receipt Date: 20190423
  Transmission Date: 20190711
  Serious: No
  Sender: FDA-Public Use
  Company Number: JP-TAKEDA-2018TUS025894

PATIENT
  Sex: Female
  Weight: 52 kg

DRUGS (1)
  1. PONATINIB [Suspect]
     Active Substance: PONATINIB
     Indication: CHRONIC MYELOID LEUKAEMIA TRANSFORMATION
     Dosage: 45 MG, QD
     Route: 048
     Dates: start: 20161122, end: 20170124

REACTIONS (1)
  - No adverse event [Unknown]
